FAERS Safety Report 5780997-8 (Version None)
Quarter: 2008Q2

REPORT INFORMATION
  Report Type: 
  Country: None (occurrence: None)
  Receive Date: 20080620
  Receipt Date: 20080611
  Transmission Date: 20081010
  Serious: Yes (Hospitalization)
  Sender: FDA-Public Use
  Company Number: US-ABBOTT-08P-163-0456745-00

PATIENT
  Sex: Female
  Weight: 108.05 kg

DRUGS (12)
  1. HUMIRA [Suspect]
     Indication: RHEUMATOID ARTHRITIS
     Route: 050
     Dates: start: 20060101, end: 20080301
  2. HUMIRA [Suspect]
     Route: 050
     Dates: start: 20080301
  3. METHYLPREDNISOLONE [Concomitant]
     Indication: RHEUMATOID ARTHRITIS
     Dosage: DOSE PACK
     Route: 048
     Dates: start: 20080530
  4. VENLAFAXINE HCL [Concomitant]
     Indication: PAIN
     Route: 048
     Dates: start: 19980101
  5. LANSOPRAZOLE [Concomitant]
     Indication: PROPHYLAXIS AGAINST GASTROINTESTINAL ULCER
     Route: 048
  6. METHOTREXATE [Concomitant]
     Indication: RHEUMATOID ARTHRITIS
     Route: 048
     Dates: start: 19970101
  7. FOLIC ACID [Concomitant]
     Indication: VITAMIN SUPPLEMENTATION
     Route: 048
     Dates: start: 19970101
  8. QUININE [Concomitant]
     Indication: MUSCLE SPASMS
     Route: 048
  9. NAPROXEN SODIUM [Concomitant]
     Indication: RHEUMATOID ARTHRITIS
     Route: 048
  10. NAPROXEN [Concomitant]
     Indication: PAIN
     Route: 048
  11. NAPROXEN [Concomitant]
     Indication: RHEUMATOID ARTHRITIS
  12. LEVOTHYROXINE SODIUM [Concomitant]
     Indication: THYROID DISORDER
     Route: 048

REACTIONS (13)
  - DRUG INEFFECTIVE [None]
  - GRIP STRENGTH DECREASED [None]
  - INAPPROPRIATE SCHEDULE OF DRUG ADMINISTRATION [None]
  - JOINT SWELLING [None]
  - MOBILITY DECREASED [None]
  - MUSCULOSKELETAL STIFFNESS [None]
  - OEDEMA PERIPHERAL [None]
  - PAIN [None]
  - PAIN IN EXTREMITY [None]
  - PHARMACEUTICAL PRODUCT COMPLAINT [None]
  - RED BLOOD CELL SEDIMENTATION RATE ABNORMAL [None]
  - RHEUMATOID ARTHRITIS [None]
  - TREATMENT NONCOMPLIANCE [None]
